FAERS Safety Report 9470006 (Version 3)
Quarter: 2015Q2

REPORT INFORMATION
  Report Type: Spontaneous
  Country: FR (occurrence: FR)
  Receive Date: 20130822
  Receipt Date: 20150605
  Transmission Date: 20150821
  Serious: Yes (Hospitalization)
  Sender: FDA-Public Use
  Company Number: FR-ROCHE-1264454

PATIENT
  Age: 62 Year
  Sex: Female
  Weight: 62 kg

DRUGS (13)
  1. DOLIPRANE [Concomitant]
     Active Substance: ACETAMINOPHEN
  2. UVEDOSE [Concomitant]
     Active Substance: CHOLECALCIFEROL
  3. MABTHERA [Suspect]
     Active Substance: RITUXIMAB
     Indication: MIXED CONNECTIVE TISSUE DISEASE
     Route: 041
     Dates: start: 20130625, end: 20130709
  4. DACUDOSES [Concomitant]
  5. MABTHERA [Suspect]
     Active Substance: RITUXIMAB
     Indication: SJOGREN^S SYNDROME
  6. OROCAL (FRANCE) [Concomitant]
  7. MABTHERA [Suspect]
     Active Substance: RITUXIMAB
     Indication: SYSTEMIC LUPUS ERYTHEMATOSUS
  8. INIPOMP [Concomitant]
     Active Substance: PANTOPRAZOLE SODIUM
  9. IMUREL [Concomitant]
     Active Substance: AZATHIOPRINE SODIUM
     Route: 065
     Dates: end: 2008
  10. AQUARETIC [Concomitant]
  11. BI-TILDIEM [Concomitant]
     Active Substance: DILTIAZEM
  12. VITAMIN B12 [Concomitant]
     Active Substance: CYANOCOBALAMIN
  13. TRIATEC (FRANCE) [Concomitant]
     Active Substance: RAMIPRIL

REACTIONS (2)
  - Vascular purpura [Recovered/Resolved]
  - Arthritis [Recovered/Resolved]

NARRATIVE: CASE EVENT DATE: 20130716
